FAERS Safety Report 7321615-7 (Version None)
Quarter: 2011Q1

REPORT INFORMATION
  Report Type: 
  Country: None (occurrence: None)
  Receive Date: 20110228
  Receipt Date: 20100909
  Transmission Date: 20110831
  Serious: No
  Sender: FDA-Public Use
  Company Number: A0876985A

PATIENT
  Age: 57 Year
  Sex: Female
  Weight: 76.4 kg

DRUGS (2)
  1. NO CONCURRENT MEDICATION [Concomitant]
  2. VALTREX [Suspect]
     Indication: GENITAL HERPES
     Route: 048

REACTIONS (1)
  - RASH GENERALISED [None]
